FAERS Safety Report 7720137-9 (Version None)
Quarter: 2011Q3

REPORT INFORMATION
  Report Type: 
  Country: None (occurrence: None)
  Receive Date: 20110831
  Receipt Date: 20110826
  Transmission Date: 20111222
  Serious: Yes (Other)
  Sender: FDA-Public Use
  Company Number: CA-TEVA-298327USA

PATIENT

DRUGS (2)
  1. FINGOLIMOD [Concomitant]
  2. COPAXONE [Suspect]
     Indication: MULTIPLE SCLEROSIS
     Route: 058

REACTIONS (3)
  - THROMBOPHLEBITIS [None]
  - PULMONARY EMBOLISM [None]
  - MULTIPLE SCLEROSIS RELAPSE [None]
